FAERS Safety Report 7348042-0 (Version None)
Quarter: 2011Q1

REPORT INFORMATION
  Report Type: 
  Country: None (occurrence: None)
  Receive Date: 20110311
  Receipt Date: 20110302
  Transmission Date: 20110831
  Serious: Yes (Other)
  Sender: FDA-Public Use
  Company Number: CA-JNJFOC-20110302261

PATIENT
  Sex: Male
  Weight: 93 kg

DRUGS (4)
  1. TYLENOL [Concomitant]
     Indication: PREMEDICATION
     Route: 065
  2. REMICADE [Suspect]
     Indication: CROHN'S DISEASE
     Dosage: X 52
     Route: 042
  3. BENADRYL [Concomitant]
     Indication: PREMEDICATION
  4. SOLU-MEDROL [Concomitant]
     Indication: PREMEDICATION
     Route: 065

REACTIONS (1)
  - DIVERTICULITIS [None]
